FAERS Safety Report 12646356 (Version 1)
Quarter: 2016Q3

REPORT INFORMATION
  Report Type: Spontaneous
  Country: GB (occurrence: GB)
  Receive Date: 20160812
  Receipt Date: 20160812
  Transmission Date: 20161109
  Serious: Yes (Other)
  Sender: FDA-Public Use
  Company Number: GB-BAXTER-2016BAX041303

PATIENT
  Age: 27 Year
  Sex: Male

DRUGS (9)
  1. LANTUS [Concomitant]
     Active Substance: INSULIN GLARGINE
     Indication: SUICIDAL IDEATION
     Dosage: 1500 UNITS
     Route: 065
  2. GLUCOSE INTRAVENOUS INFUSION BP 20% W/V [Suspect]
     Active Substance: DEXTROSE
     Indication: INTENTIONAL OVERDOSE
     Dosage: REQUIRED 600-800 G OF GLUCOSE PER DAY
     Route: 042
  3. REGULAR INSULIN [Concomitant]
     Active Substance: INSULIN NOS
     Route: 058
  4. NOVORAPID [Concomitant]
     Active Substance: INSULIN ASPART
     Indication: SUICIDAL IDEATION
     Dosage: 1500 UNITS
     Route: 065
  5. GLUCOSE 10% W/V SOLUTION FOR INFUSION BP [Suspect]
     Active Substance: DEXTROSE
     Indication: HYPOGLYCAEMIA
  6. REGULAR INSULIN [Concomitant]
     Active Substance: INSULIN NOS
     Indication: TYPE 1 DIABETES MELLITUS
     Route: 065
  7. GLUCOSE 10% W/V SOLUTION FOR INFUSION BP [Suspect]
     Active Substance: DEXTROSE
     Indication: INTENTIONAL OVERDOSE
     Route: 042
  8. GLUCOSE INTRAVENOUS INFUSION BP 20% W/V [Suspect]
     Active Substance: DEXTROSE
     Indication: HYPOGLYCAEMIA
  9. SERTRALINE [Concomitant]
     Active Substance: SERTRALINE HYDROCHLORIDE
     Indication: PRODUCT USED FOR UNKNOWN INDICATION
     Route: 065

REACTIONS (1)
  - Hepatic function abnormal [Recovering/Resolving]
